FAERS Safety Report 19179804 (Version 1)
Quarter: 2021Q2

REPORT INFORMATION
  Report Type: Spontaneous
  Country: US (occurrence: US)
  Receive Date: 20210424
  Receipt Date: 20210424
  Transmission Date: 20210717
  Serious: Yes (Disabling)
  Sender: FDA-Public Use
  Company Number: None

PATIENT
  Age: 39 Year
  Sex: Female
  Weight: 81 kg

DRUGS (1)
  1. REGLAN [Suspect]
     Active Substance: METOCLOPRAMIDE HYDROCHLORIDE
     Route: 042
     Dates: start: 20200809, end: 20200809

REACTIONS (12)
  - Nausea [None]
  - Dyskinesia [None]
  - Depression [None]
  - Paranoia [None]
  - Torticollis [None]
  - Insomnia [None]
  - Impaired work ability [None]
  - Akathisia [None]
  - Anxiety [None]
  - Electric shock sensation [None]
  - Diarrhoea [None]
  - Tachycardia [None]

NARRATIVE: CASE EVENT DATE: 20200809
